FAERS Safety Report 9162113 (Version 10)
Quarter: 2014Q2

REPORT INFORMATION
  Report Type: Report from Study
  Country: JP (occurrence: JP)
  Receive Date: 20130314
  Receipt Date: 20140521
  Transmission Date: 20141212
  Serious: Yes (Hospitalization, Other)
  Sender: FDA-Public Use
  Company Number: JP-UCBSA-080479

PATIENT
  Age: 58 Year
  Sex: Female
  Weight: 55.3 kg

DRUGS (20)
  1. CERTOLIZUMAB PEGOL [Suspect]
     Indication: RHEUMATOID ARTHRITIS
     Route: 058
     Dates: start: 20121130, end: 20130222
  2. CERTOLIZUMAB PEGOL [Suspect]
     Indication: RHEUMATOID ARTHRITIS
     Route: 058
     Dates: start: 2012, end: 20121116
  3. CERTOLIZUMAB PEGOL [Suspect]
     Indication: RHEUMATOID ARTHRITIS
     Dosage: LOADING DOSE (400 MG: W0, W2, W4)
     Route: 058
     Dates: start: 20120615, end: 2012
  4. METHOTREXATE [Suspect]
     Indication: RHEUMATOID ARTHRITIS
     Dosage: DIVIDED INTO 4 DOSES/WEEK
     Route: 048
     Dates: start: 20130112, end: 20130324
  5. METHOTREXATE [Suspect]
     Indication: RHEUMATOID ARTHRITIS
     Dosage: DIVIDED INTO 4 DOSES/WEEK
     Route: 048
     Dates: start: 20121103, end: 20130106
  6. METHOTREXATE [Suspect]
     Indication: RHEUMATOID ARTHRITIS
     Dosage: DIVIDED INTO 3 DOSES/WEEK
     Route: 048
     Dates: start: 20120811, end: 20121028
  7. METHOTREXATE [Suspect]
     Indication: RHEUMATOID ARTHRITIS
     Dosage: DIVIDED INTO 3 DOSES/WEEK
     Route: 048
     Dates: start: 20120728, end: 20120805
  8. METHOTREXATE [Suspect]
     Indication: RHEUMATOID ARTHRITIS
     Dosage: DIVIDED INTO 3 DOSES/WEEK
     Route: 048
     Dates: start: 20120616, end: 20120624
  9. METHOTREXATE [Suspect]
     Indication: RHEUMATOID ARTHRITIS
     Dosage: DIVIDED INTO 3 DOSES/WEEK
     Route: 048
     Dates: start: 20120714, end: 20120722
  10. METHOTREXATE [Suspect]
     Indication: RHEUMATOID ARTHRITIS
     Dosage: DIVIDED INTO 3 DOSES/WEEK
     Route: 048
     Dates: start: 20120630, end: 20120708
  11. CALCIUM FOLINATE [Concomitant]
     Indication: PROPHYLAXIS
     Route: 048
     Dates: start: 20121105, end: 20130325
  12. ISONIAZID [Concomitant]
     Indication: ANTIBIOTIC PROPHYLAXIS
     Route: 048
     Dates: start: 20120605
  13. CELECOXIB [Concomitant]
     Indication: RHEUMATOID ARTHRITIS
     Route: 048
     Dates: start: 20120413
  14. REBAMIPIDE [Concomitant]
     Indication: PROPHYLAXIS AGAINST GASTROINTESTINAL ULCER
     Route: 048
     Dates: start: 20120413
  15. AMLODIPINE BESILATE [Concomitant]
     Indication: HYPERTENSION
     Route: 048
     Dates: start: 20120510
  16. KETOPROFEN [Concomitant]
     Indication: RHEUMATOID ARTHRITIS
     Dosage: SHEET, ADEQUATE DOSE
     Route: 062
     Dates: start: 20120522
  17. PREDNISOLONE FAMESYLATE [Concomitant]
     Indication: RHEUMATOID ARTHRITIS
     Dosage: ADEQUATE DOSE
     Route: 061
     Dates: start: 20121228
  18. GENTAMICIN SULFATE [Concomitant]
     Indication: ECZEMA
     Dosage: ADEQUATE DOSE
     Route: 061
     Dates: start: 20120713
  19. PREDNISOLONE [Concomitant]
     Indication: RHEUMATOID ARTHRITIS
     Route: 048
     Dates: start: 20130330
  20. ALENDRONATE SODIUM HYDRATE [Concomitant]
     Indication: OSTEOPOROSIS PROPHYLAXIS
     Route: 048
     Dates: start: 20130330

REACTIONS (1)
  - Lymphoproliferative disorder [Not Recovered/Not Resolved]
